FAERS Safety Report 6305551-0 (Version None)
Quarter: 2009Q3

REPORT INFORMATION
  Report Type: 
  Country: None (occurrence: None)
  Receive Date: 20090807
  Receipt Date: 20090728
  Transmission Date: 20100115
  Serious: Yes (Hospitalization)
  Sender: FDA-Public Use
  Company Number: LTI2009A00220

PATIENT
  Age: 43 Year
  Sex: Female

DRUGS (5)
  1. ACTOS [Suspect]
     Indication: TYPE 2 DIABETES MELLITUS
     Dosage: 15 MG (15 MG, 1 IN 1 D) ORAL
     Route: 048
     Dates: start: 20090626, end: 20090711
  2. BISOPROLOL FUMARATE [Concomitant]
  3. ATORVASTATIN CALCIUM [Concomitant]
  4. STAGID (METFORMIN EMBONATE) [Concomitant]
  5. GLYBURIDE [Concomitant]

REACTIONS (2)
  - ACUTE PULMONARY OEDEMA [None]
  - DYSPNOEA [None]
